FAERS Safety Report 11505877 (Version 1)
Quarter: 2015Q3

REPORT INFORMATION
  Report Type: Spontaneous
  Country: US (occurrence: US)
  Receive Date: 20150915
  Receipt Date: 20150915
  Transmission Date: 20151125
  Serious: Yes (Hospitalization)
  Sender: FDA-Public Use
  Company Number: US-ROCHE-783903

PATIENT
  Age: 48 Year
  Sex: Female

DRUGS (3)
  1. RIBAVIRIN. [Suspect]
     Active Substance: RIBAVIRIN
     Indication: HEPATITIS C
     Dosage: FREQUENCY: EVERY DAY
     Route: 065
  2. PEGASYS [Suspect]
     Active Substance: PEGINTERFERON ALFA-2A
     Indication: HEPATITIS C
     Dosage: LAST DOSE : 26 MAY 2011
     Route: 065
  3. RIBAVIRIN. [Suspect]
     Active Substance: RIBAVIRIN
     Dosage: DOSE REDUCE, FREQUENCY: EVERY DAY
     Route: 065

REACTIONS (2)
  - Weight increased [Unknown]
  - Ammonia increased [Unknown]

NARRATIVE: CASE EVENT DATE: 20110523
